FAERS Safety Report 7719260-4 (Version None)
Quarter: 2011Q3

REPORT INFORMATION
  Report Type: 
  Country: None (occurrence: None)
  Receive Date: 20110825
  Receipt Date: 20110816
  Transmission Date: 20111222
  Serious: Yes (Congenital Anomaly)
  Sender: FDA-Public Use
  Company Number: 1000022949

PATIENT
  Sex: Male

DRUGS (1)
  1. LEXAPRO [Suspect]
     Dosage: TRANSPLACENTAL
     Route: 064
     Dates: end: 20110714

REACTIONS (2)
  - HYPOPLASTIC LEFT HEART SYNDROME [None]
  - MATERNAL DRUGS AFFECTING FOETUS [None]
